FAERS Safety Report 15598071 (Version 3)
Quarter: 2023Q2

REPORT INFORMATION
  Report Type: Spontaneous
  Country: JP (occurrence: JP)
  Receive Date: 20181108
  Receipt Date: 20230427
  Transmission Date: 20230722
  Serious: Yes (Other)
  Sender: FDA-Public Use
  Company Number: JP-002147023-PHJP2018JP018464

PATIENT

DRUGS (2)
  1. RUXOLITINIB [Suspect]
     Active Substance: RUXOLITINIB
     Indication: Polycythaemia vera
     Dosage: 5 MG, BID
     Route: 048
     Dates: start: 20181006, end: 20181018
  2. ACETAMINOPHEN\BUTALBITAL [Concomitant]
     Active Substance: ACETAMINOPHEN\BUTALBITAL
     Indication: Product used for unknown indication
     Dosage: UNK
     Route: 065

REACTIONS (1)
  - Liver disorder [Recovered/Resolved]

NARRATIVE: CASE EVENT DATE: 20181015
